FAERS Safety Report 23479841 (Version 1)
Quarter: 2024Q1

REPORT INFORMATION
  Report Type: Spontaneous
  Country: GB (occurrence: GB)
  Receive Date: 20240205
  Receipt Date: 20240205
  Transmission Date: 20240410
  Serious: Yes (Life-Threatening)
  Sender: FDA-Public Use
  Company Number: None

PATIENT
  Age: 79 Year
  Sex: Female
  Weight: 52 kg

DRUGS (19)
  1. CLARITHROMYCIN [Suspect]
     Active Substance: CLARITHROMYCIN
     Route: 065
     Dates: start: 20240118
  2. DICLOFENAC DIETHYLAMINE [Concomitant]
     Active Substance: DICLOFENAC DIETHYLAMINE
     Dosage: APPLY 3 TIMES/DAY
     Dates: start: 20230310
  3. CLOBETASOL PROPIONATE [Concomitant]
     Active Substance: CLOBETASOL PROPIONATE
     Dosage: APPLY 1-2 TIMES/DAY
     Dates: start: 20231207
  4. KETOCONAZOLE [Concomitant]
     Active Substance: KETOCONAZOLE
     Dosage: USE AS DIRECTED
     Dates: start: 20230310
  5. ALBUTEROL [Concomitant]
     Active Substance: ALBUTEROL
     Dosage: TIME INTERVAL: AS NECESSARY
     Dates: start: 20230310
  6. AMOXICILLIN [Concomitant]
     Active Substance: AMOXICILLIN
     Dosage: TIME INTERVAL: 0.33333333 DAYS
     Dates: start: 20240104, end: 20240109
  7. NEOMYCIN SULFATE [Concomitant]
     Active Substance: NEOMYCIN SULFATE
     Dosage: TIME INTERVAL: 0.33333333 DAYS
     Dates: start: 20240104, end: 20240109
  8. CEFUROXIME [Concomitant]
     Active Substance: CEFUROXIME
  9. HYDROCORTISONE [Concomitant]
     Active Substance: HYDROCORTISONE
     Dosage: TIME INTERVAL: AS NECESSARY: APPLY TWICE DAILY
     Dates: start: 20220826, end: 20240104
  10. CALCIPOTRIENE [Concomitant]
     Active Substance: CALCIPOTRIENE
     Dosage: TO LEFT SHIN FOR 6 -8 WEEKS
     Dates: start: 20231026, end: 20231123
  11. ALENDRONIC ACID [Concomitant]
     Active Substance: ALENDRONIC ACID
     Dates: start: 20230310
  12. MACROGOL COMPOUND [Concomitant]
     Dates: start: 20230310
  13. NYSTATIN [Concomitant]
     Active Substance: NYSTATIN
     Dosage: TO BE KEPT IN MOUTH FOR SOMETIME BEFORE SW...
  14. OMEPRAZOLE [Concomitant]
     Active Substance: OMEPRAZOLE
     Dosage: CAN START AFTER CLARYTHROMYCIN - ...
     Dates: start: 20240118
  15. BECLOMETHASONE DIPROPIONATE [Concomitant]
     Active Substance: BECLOMETHASONE DIPROPIONATE
     Dates: start: 20230310
  16. HYDROMOL EMOLLIENT [Concomitant]
     Dosage: USE AS DIRECTED
     Dates: start: 20220826
  17. ADCAL [Concomitant]
     Dates: start: 20231023
  18. PREDNISOLONE [Concomitant]
     Active Substance: PREDNISOLONE
     Dosage: IN THE MORNING WITH FOOD
     Dates: start: 20240104
  19. ATORVASTATIN [Concomitant]
     Active Substance: ATORVASTATIN
     Dates: start: 20221019

REACTIONS (3)
  - Angioedema [Recovered/Resolved]
  - Oral pruritus [Unknown]
  - Swollen tongue [Unknown]
